FAERS Safety Report 16136323 (Version 1)
Quarter: 2019Q1

REPORT INFORMATION
  Report Type: Spontaneous
  Country: FR (occurrence: FR)
  Receive Date: 20190329
  Receipt Date: 20190329
  Transmission Date: 20190418
  Serious: Yes (Hospitalization)
  Sender: FDA-Public Use
  Company Number: FR-GILEAD-2019-0398918

PATIENT
  Age: 45 Year
  Sex: Female
  Weight: 51 kg

DRUGS (14)
  1. MAG 2 [MAGNESIUM CARBONATE] [Suspect]
     Active Substance: MAGNESIUM CARBONATE
     Indication: BLOOD MAGNESIUM DECREASED
     Route: 048
     Dates: start: 20190122, end: 20190215
  2. ISENTRESS [Concomitant]
     Active Substance: RALTEGRAVIR POTASSIUM
  3. LEVETIRACETAM ACCORD [Suspect]
     Active Substance: LEVETIRACETAM
     Indication: SEIZURE
     Dosage: 1000 MG, QD
     Route: 048
     Dates: start: 20190111, end: 20190215
  4. FUNGIZONE [Concomitant]
     Active Substance: AMPHOTERICIN B
  5. PRIMPERAN [Suspect]
     Active Substance: METOCLOPRAMIDE HYDROCHLORIDE
     Indication: NAUSEA
     Dosage: 30 MG, QD
     Route: 048
     Dates: start: 20190108, end: 20190215
  6. ROVALCYTE [Suspect]
     Active Substance: VALGANCICLOVIR HYDROCHLORIDE
     Indication: CYTOMEGALOVIRUS INFECTION
     Dosage: 900 MG, QD
     Route: 048
     Dates: start: 20190120, end: 20190215
  7. BACTRIM [Suspect]
     Active Substance: SULFAMETHOXAZOLE\TRIMETHOPRIM
     Indication: PNEUMOCYSTIS JIROVECII PNEUMONIA
     Route: 041
     Dates: start: 20190108, end: 20190215
  8. PHOSPHONEUROS [Suspect]
     Active Substance: CALCIUM PHOSPHATE, DIBASIC, ANHYDROUS\MAGNESIUM GLYCEROPHOSPHATE\PHOSPHORIC ACID\SODIUM PHOSPHATE, DIBASIC
     Indication: BLOOD PHOSPHORUS DECREASED
     Route: 048
     Dates: start: 20190109, end: 20190215
  9. RITONAVIR. [Concomitant]
     Active Substance: RITONAVIR
  10. FRAGMINE [Concomitant]
     Active Substance: DALTEPARIN SODIUM
  11. FOLIC ACID. [Suspect]
     Active Substance: FOLIC ACID
     Indication: ANAEMIA
     Dosage: 20 MG, QD
     Route: 048
     Dates: start: 20190109, end: 20190215
  12. PREZISTA [Concomitant]
     Active Substance: DARUNAVIR ETHANOLATE
  13. VIREAD [Suspect]
     Active Substance: TENOFOVIR DISOPROXIL FUMARATE
     Indication: HIV INFECTION
     Dosage: 245 MG, QD
     Route: 048
     Dates: start: 20190203, end: 20190215
  14. INTELENCE [Concomitant]
     Active Substance: ETRAVIRINE

REACTIONS (4)
  - Neutropenia [Recovered/Resolved]
  - Rash papular [Recovered/Resolved]
  - Eosinophilia [Recovering/Resolving]
  - Hyponatraemia [Recovering/Resolving]

NARRATIVE: CASE EVENT DATE: 20190209
